FAERS Safety Report 12499507 (Version 1)
Quarter: 2016Q2

REPORT INFORMATION
  Report Type: Spontaneous
  Country: US (occurrence: None)
  Receive Date: 20160624
  Receipt Date: 20160624
  Transmission Date: 20160815
  Serious: No
  Sender: FDA-Public Use
  Company Number: None

PATIENT
  Age: 60 Year
  Sex: Male

DRUGS (1)
  1. TIKOSYN [Suspect]
     Active Substance: DOFETILIDE
     Indication: ATRIAL FLUTTER
     Route: 048
     Dates: start: 20160419

REACTIONS (4)
  - Dizziness [None]
  - Fatigue [None]
  - Cardiac flutter [None]
  - Arrhythmia [None]

NARRATIVE: CASE EVENT DATE: 20160619
